FAERS Safety Report 24693630 (Version 1)
Quarter: 2024Q4

REPORT INFORMATION
  Report Type: Spontaneous
  Country: JP (occurrence: JP)
  Receive Date: 20241204
  Receipt Date: 20241204
  Transmission Date: 20250115
  Serious: Yes (Hospitalization, Other)
  Sender: NOVO NORDISK
  Company Number: JP-NOVOPROD-1320551

PATIENT
  Age: 44 Year
  Sex: Male
  Weight: 72 kg

DRUGS (5)
  1. OZEMPIC [Suspect]
     Active Substance: SEMAGLUTIDE
     Indication: Type 2 diabetes mellitus
     Dosage: 0.5 MG, QW
     Route: 058
  2. FUROSEMIDE [Concomitant]
     Active Substance: FUROSEMIDE
     Indication: Oedema
     Dosage: 40 MG, QD
     Route: 048
  3. OLOPATADINE HYDROCHLORIDE [Concomitant]
     Active Substance: OLOPATADINE HYDROCHLORIDE
     Indication: Product used for unknown indication
     Dosage: 2.5 MG, QD
     Route: 048
  4. PITAVASTATIN CALCIUM [Concomitant]
     Active Substance: PITAVASTATIN CALCIUM
     Indication: Hypercholesterolaemia
     Dosage: 2 MG, QD
     Route: 048
  5. TOPIROXOSTAT [Concomitant]
     Active Substance: TOPIROXOSTAT
     Indication: Hyperuricaemia
     Dosage: 20 MG, QD
     Route: 048

REACTIONS (4)
  - Hypoglycaemic unconsciousness [Recovered/Resolved]
  - Physical deconditioning [Unknown]
  - Condition aggravated [Unknown]
  - Inappropriate schedule of product discontinuation [Recovered/Resolved]

NARRATIVE: CASE EVENT DATE: 20241026
